FAERS Safety Report 4295275-6 (Version None)
Quarter: 2004Q1

REPORT INFORMATION
  Report Type: 
  Country: None (occurrence: None)
  Receive Date: 20040216
  Receipt Date: 20030508
  Transmission Date: 20041129
  Serious: No
  Sender: FDA-Public Use
  Company Number: US-GLAXOSMITHKLINE-A0407817A

PATIENT
  Age: 26 Year
  Sex: Female
  Weight: 53.2 kg

DRUGS (4)
  1. LAMICTAL [Suspect]
     Dosage: 250MG PER DAY
     Route: 048
     Dates: start: 20010701, end: 20021101
  2. CELEXA [Concomitant]
  3. ADDERALL 10 [Concomitant]
  4. AMBIEN [Concomitant]

REACTIONS (2)
  - GENITAL INFECTION FEMALE [None]
  - VAGINAL DISCHARGE [None]
